FAERS Safety Report 15076371 (Version 1)
Quarter: 2018Q2

REPORT INFORMATION
  Report Type: Spontaneous
  Country: AR (occurrence: AR)
  Receive Date: 20180627
  Receipt Date: 20180627
  Transmission Date: 20180711
  Serious: Yes (Other)
  Sender: FDA-Public Use
  Company Number: AR-PFIZER INC-2018131935

PATIENT
  Sex: Female

DRUGS (1)
  1. SUNITINIB MALATE. [Suspect]
     Active Substance: SUNITINIB MALATE
     Indication: PAPILLARY RENAL CELL CARCINOMA
     Dosage: 50 MG, CYCLIC (DAILY (2/1 CYCLE)

REACTIONS (6)
  - Neutrophil count decreased [Not Recovered/Not Resolved]
  - Pericardial haemorrhage [Unknown]
  - Stomatitis [Unknown]
  - Hypothyroidism [Unknown]
  - White blood cell count decreased [Unknown]
  - Forced expiratory volume decreased [Unknown]

NARRATIVE: CASE EVENT DATE: 20180307
